FAERS Safety Report 4528060-8 (Version None)
Quarter: 2004Q4

REPORT INFORMATION
  Report Type: 
  Country: None (occurrence: None)
  Receive Date: 20041129
  Receipt Date: 20040930
  Transmission Date: 20050328
  Serious: Yes (Hospitalization)
  Sender: FDA-Public Use
  Company Number: US_0408104879

PATIENT
  Age: 41 Year
  Sex: Female
  Weight: 118 kg

DRUGS (16)
  1. ZYPREXA [Suspect]
     Indication: TINNITUS
     Dosage: 15 MG AT BEDTIME
     Dates: start: 20011212, end: 20020301
  2. ZESTRIL [Concomitant]
  3. CELEXA [Concomitant]
  4. 'THIMOX' [Concomitant]
  5. CELEBREX [Concomitant]
  6. SINGULAIR (MONTELUKAST) [Concomitant]
  7. NEXIUM [Concomitant]
  8. 'BECUSATE' [Concomitant]
  9. SENOKOT (SENNA ALEXANDRINA) [Concomitant]
  10. TRAZODONE HCL [Concomitant]
  11. ZYRTEC [Concomitant]
  12. HYDROCHLOROTHIAZIDE [Concomitant]
  13. ATROVENT [Concomitant]
  14. POTASSIUM [Concomitant]
  15. VITAMIN C [Concomitant]
  16. VITAMIN E (HERBAL OIL NOS) [Concomitant]

REACTIONS (9)
  - DIABETES MELLITUS [None]
  - FATIGUE [None]
  - HEADACHE [None]
  - IMPAIRED HEALING [None]
  - INCONTINENCE [None]
  - UPPER RESPIRATORY TRACT INFECTION [None]
  - VISION BLURRED [None]
  - WEIGHT DECREASED [None]
  - WEIGHT INCREASED [None]
